FAERS Safety Report 21463155 (Version 1)
Quarter: 2022Q4

REPORT INFORMATION
  Report Type: Spontaneous
  Country: GB (occurrence: GB)
  Receive Date: 20221017
  Receipt Date: 20221017
  Transmission Date: 20230112
  Serious: Yes (Other)
  Sender: FDA-Public Use
  Company Number: GB-ABBVIE-4153788

PATIENT
  Sex: Female

DRUGS (2)
  1. CARBIDOPA\LEVODOPA [Suspect]
     Active Substance: CARBIDOPA\LEVODOPA
     Indication: Product used for unknown indication
     Dosage: CONTINUOUS RATE FROM 2.2ML
     Route: 050
  2. CARBIDOPA\LEVODOPA [Suspect]
     Active Substance: CARBIDOPA\LEVODOPA

REACTIONS (8)
  - Accidental overdose [Unknown]
  - Vomiting [Unknown]
  - Muscle rigidity [Unknown]
  - Depressed level of consciousness [Unknown]
  - Tachycardia [Unknown]
  - Freezing phenomenon [Unknown]
  - On and off phenomenon [Unknown]
  - Dizziness [Unknown]

NARRATIVE: CASE EVENT DATE: 20220901
